FAERS Safety Report 6965745-8 (Version None)
Quarter: 2010Q3

REPORT INFORMATION
  Report Type: 
  Country: None (occurrence: None)
  Receive Date: 20100903
  Receipt Date: 20100830
  Transmission Date: 20110219
  Serious: Yes (Hospitalization)
  Sender: FDA-Public Use
  Company Number: JP-MERCK-1008USA04195

PATIENT
  Age: 50 Year
  Sex: Female

DRUGS (3)
  1. SINGULAIR [Suspect]
     Route: 048
  2. SINGULAIR [Suspect]
     Route: 048
  3. QVAR 40 [Concomitant]
     Route: 055

REACTIONS (3)
  - HYPOAESTHESIA [None]
  - OEDEMA PERIPHERAL [None]
  - PAIN IN EXTREMITY [None]
